FAERS Safety Report 9600373 (Version 1)
Quarter: 2013Q4

REPORT INFORMATION
  Report Type: Spontaneous
  Country: US (occurrence: US)
  Receive Date: 20131004
  Receipt Date: 20131004
  Transmission Date: 20140711
  Serious: No
  Sender: FDA-Public Use
  Company Number: US-AMGEN-USASP2013035095

PATIENT
  Age: 54 Year
  Sex: Female
  Weight: 41.72 kg

DRUGS (7)
  1. ENBREL [Suspect]
     Indication: PRODUCT USED FOR UNKNOWN INDICATION
     Dosage: 50 MG, QWK
     Route: 058
  2. XANAX [Concomitant]
     Dosage: 1 MG, UNK
  3. AMLODIPINE [Concomitant]
     Dosage: 5 MG, UNK
  4. ASA [Concomitant]
     Dosage: 81 MG,EC, UNK
  5. SULFASALAZINE [Concomitant]
     Dosage: 500 MG, UNK
  6. CALCIUM [Concomitant]
     Dosage: 500 UNK, UNK
  7. FOLIC ACID [Concomitant]
     Dosage: UNK

REACTIONS (1)
  - Oral discomfort [Unknown]
